FAERS Safety Report 9872083 (Version 1)
Quarter: 2014Q1

REPORT INFORMATION
  Report Type: Spontaneous
  Country: DE (occurrence: DE)
  Receive Date: 20140205
  Receipt Date: 20140205
  Transmission Date: 20141002
  Serious: Yes (Other)
  Sender: FDA-Public Use
  Company Number: DE-B.I. PHARMACEUTICALS,INC./RIDGEFIELD-2014-BI-04591DE

PATIENT
  Age: 63 Year
  Sex: Male
  Weight: 135 kg

DRUGS (6)
  1. MICARDIS [Suspect]
     Indication: HYPERTENSION
  2. SERTRALIN [Concomitant]
  3. TAMSULOSIN [Concomitant]
     Dosage: 0.04
  4. BYDURION [Concomitant]
     Dosage: 0.2857 MG
  5. VITAMIN B12 [Concomitant]
     Indication: INTRINSIC FACTOR DEFICIENCY
  6. METFORMIN [Concomitant]

REACTIONS (2)
  - Renal cell carcinoma [Unknown]
  - Drug ineffective [Not Recovered/Not Resolved]
